FAERS Safety Report 15807007 (Version 2)
Quarter: 2021Q4

REPORT INFORMATION
  Report Type: Report from Study
  Country: US (occurrence: US)
  Receive Date: 20190110
  Receipt Date: 20211229
  Transmission Date: 20220303
  Serious: No
  Sender: FDA-Public Use
  Company Number: US-MYLANLABS-2019M1000439

PATIENT
  Sex: Female

DRUGS (5)
  1. EPINEPHRINE [Suspect]
     Active Substance: EPINEPHRINE
     Indication: Product used for unknown indication
     Dosage: UNK
  2. PREMARIN [Suspect]
     Active Substance: ESTROGENS, CONJUGATED
     Indication: Product used for unknown indication
     Dosage: UNK, APPLY 3/4 GM PEA SIZE WITH FINGERTIP M/W/F NIGHTS
     Route: 067
     Dates: start: 20211130
  3. PENICILLIN [Suspect]
     Active Substance: PENICILLIN
     Dosage: UNK
  4. PHENERGAN [Suspect]
     Active Substance: PROMETHAZINE HYDROCHLORIDE
     Indication: Product used for unknown indication
     Dosage: UNK
  5. IODINE [Suspect]
     Active Substance: IODINE
     Indication: Product used for unknown indication
     Dosage: UNK

REACTIONS (1)
  - Drug hypersensitivity [Unknown]
